FAERS Safety Report 9817938 (Version 2)
Quarter: 2014Q1

REPORT INFORMATION
  Report Type: Report from Study
  Country: JP (occurrence: JP)
  Receive Date: 20140115
  Receipt Date: 20140120
  Transmission Date: 20141002
  Serious: Yes (Hospitalization, Other)
  Sender: FDA-Public Use
  Company Number: PHHY2014JP003738

PATIENT
  Age: 42 Year
  Sex: Female

DRUGS (3)
  1. LEPONEX / CLOZARIL [Suspect]
     Indication: SCHIZOPHRENIA
     Dosage: UNK UKN, UNK
     Route: 048
     Dates: start: 20130404
  2. LEPONEX / CLOZARIL [Suspect]
     Dosage: 100 MG, AT MORNING
     Route: 048
     Dates: start: 20140110
  3. LEPONEX / CLOZARIL [Suspect]
     Dosage: 100 MG, AT EVENING
     Route: 048
     Dates: start: 20140111

REACTIONS (1)
  - Appendicitis [Unknown]
